FAERS Safety Report 4517274-9 (Version None)
Quarter: 2004Q4

REPORT INFORMATION
  Report Type: 
  Country: None (occurrence: None)
  Receive Date: 20041008
  Receipt Date: 20040722
  Transmission Date: 20050328
  Serious: No
  Sender: FDA-Public Use
  Company Number: 2004S1000153

PATIENT
  Age: 72 Year
  Sex: Male
  Weight: 63 kg

DRUGS (28)
  1. CUBICIN [Suspect]
     Indication: ENDOCARDITIS
     Dosage: 6 MG/KG; Q24H; IV
     Route: 042
     Dates: start: 20040714
  2. CUBICIN [Suspect]
     Indication: GLYCOPEPTIDE ANTIBIOTIC RESISTANT ENTEROCOCCAL INFECTION
     Dosage: 6 MG/KG; Q24H; IV
     Route: 042
     Dates: start: 20040714
  3. VANCOMYCIN [Concomitant]
  4. LINEZOLID [Concomitant]
  5. LEVOFLOXACIN [Concomitant]
  6. METRONIDAZOLE [Concomitant]
  7. RIFAMPICIN [Concomitant]
  8. SIMVASTATIN [Concomitant]
  9. DIGOXIN [Concomitant]
  10. METOPROLOL [Concomitant]
  11. RAMIPRIL [Concomitant]
  12. NITROGLYCERIN [Concomitant]
  13. AMIODARONE HCL [Concomitant]
  14. FUROSEMIDE [Concomitant]
  15. ACETYLSALICYLIC ACID [Concomitant]
  16. HEPARIN [Concomitant]
  17. INSULIN [Concomitant]
  18. LANSOPRAZOLE [Concomitant]
  19. METOCLOPRAMIDE [Concomitant]
  20. MISOPROSTOL [Concomitant]
  21. DOCUSATE SODIUM [Concomitant]
  22. LEVOTHYROXINE SODIUM [Concomitant]
  23. FERROUS SULFATE TAB [Concomitant]
  24. MAGNESIUM OXIDE [Concomitant]
  25. VITAMIN C [Concomitant]
  26. MULTI-VITAMIN [Concomitant]
  27. ZINC SULFATE [Concomitant]
  28. PERCOCET [Concomitant]

REACTIONS (1)
  - BLOOD ALKALINE PHOSPHATASE INCREASED [None]
